FAERS Safety Report 15589014 (Version 5)
Quarter: 2021Q3

REPORT INFORMATION
  Report Type: Spontaneous
  Country: US (occurrence: US)
  Receive Date: 20181106
  Receipt Date: 20210816
  Transmission Date: 20211014
  Serious: Yes (Other)
  Sender: FDA-Public Use
  Company Number: US-PFIZER INC-2018438164

PATIENT
  Age: 65 Year
  Sex: Female
  Weight: 75.75 kg

DRUGS (3)
  1. DILAUDID [Concomitant]
     Active Substance: HYDROMORPHONE HYDROCHLORIDE
     Dosage: UNK
  2. IBRANCE [Suspect]
     Active Substance: PALBOCICLIB
     Indication: BREAST CANCER FEMALE
     Dosage: 125 MG, UNK
  3. IBRANCE [Suspect]
     Active Substance: PALBOCICLIB
     Dosage: 125 MG, UNK
     Dates: start: 20181010

REACTIONS (4)
  - Altered state of consciousness [Unknown]
  - Second primary malignancy [Unknown]
  - Pain [Unknown]
  - Hallucination [Unknown]

NARRATIVE: CASE EVENT DATE: 201809
